FAERS Safety Report 14931895 (Version 3)
Quarter: 2022Q1

REPORT INFORMATION
  Report Type: Report from Study
  Country: US (occurrence: US)
  Receive Date: 20180524
  Receipt Date: 20220131
  Transmission Date: 20220424
  Serious: No
  Sender: FDA-Public Use
  Company Number: US-ACADIA PHARMACEUTICALS INC.-ACA-2018-007574

PATIENT
  Sex: Male

DRUGS (6)
  1. NUPLAZID [Suspect]
     Active Substance: PIMAVANSERIN TARTRATE
     Indication: Parkinson^s disease
     Dosage: 34 MILLIGRAM, QD
     Route: 048
  2. NUPLAZID [Suspect]
     Active Substance: PIMAVANSERIN TARTRATE
     Indication: Parkinson^s disease psychosis
     Dosage: 34 MILLIGRAM, QD
     Route: 065
     Dates: start: 201801, end: 201802
  3. NUPLAZID [Suspect]
     Active Substance: PIMAVANSERIN TARTRATE
     Indication: Hallucination
     Dosage: 34 MILLIGRAM, QD
     Route: 048
     Dates: start: 20201219
  4. NUPLAZID [Suspect]
     Active Substance: PIMAVANSERIN TARTRATE
     Indication: Delusion
     Dosage: 34 MILLIGRAM, QD
     Route: 048
  5. LEVODOPA [Suspect]
     Active Substance: LEVODOPA
  6. PRIMIDONE [Concomitant]
     Active Substance: PRIMIDONE
     Dosage: 50 MILLIGRAM

REACTIONS (11)
  - Malaise [Unknown]
  - Anxiety [Unknown]
  - Diarrhoea [Unknown]
  - Asthenia [Not Recovered/Not Resolved]
  - Nightmare [Unknown]
  - Product dose omission issue [Unknown]
  - Product dose omission issue [Recovered/Resolved]
  - Dyspnoea [Unknown]
  - Hallucination [Unknown]
  - Hallucination [Unknown]
  - Constipation [Unknown]
